FAERS Safety Report 4661093-X (Version None)
Quarter: 2005Q2

REPORT INFORMATION
  Report Type: 
  Country: None (occurrence: None)
  Receive Date: 20050511
  Receipt Date: 20050428
  Transmission Date: 20051028
  Serious: Yes (Other)
  Sender: FDA-Public Use
  Company Number: 2005066308

PATIENT
  Age: 27 Year
  Sex: Female

DRUGS (1)
  1. CLINDAMYCIN HYDROCHLORIDE [Suspect]
     Indication: INFLAMMATION
     Dosage: 600 MG (150 MG, 4 IN 1 D), ORAL
     Route: 048
     Dates: start: 20050409, end: 20050417

REACTIONS (2)
  - CANDIDIASIS [None]
  - EXANTHEM [None]
